FAERS Safety Report 9012200 (Version 1)
Quarter: 2013Q1

REPORT INFORMATION
  Report Type: Spontaneous
  Country: IN (occurrence: IN)
  Receive Date: 20130114
  Receipt Date: 20130114
  Transmission Date: 20140127
  Serious: Yes (Hospitalization, Other)
  Sender: FDA-Public Use
  Company Number: IN-ELI_LILLY_AND_COMPANY-IN201301001967

PATIENT
  Age: 16 Year
  Sex: Male
  Weight: 45 kg

DRUGS (1)
  1. OLANZAPINE [Suspect]
     Dosage: 750 MG, SINGLE

REACTIONS (13)
  - Tachycardia [Recovered/Resolved]
  - Hypotension [Recovered/Resolved]
  - Myoclonus [Recovered/Resolved]
  - Hyperpyrexia [Recovered/Resolved]
  - Muscle rigidity [Recovered/Resolved]
  - Coma [Recovered/Resolved]
  - Oral discharge [Recovered/Resolved]
  - Leukocytosis [Recovered/Resolved]
  - Blood creatine phosphokinase increased [Recovered/Resolved]
  - Consciousness fluctuating [Recovered/Resolved]
  - Suicide attempt [Recovered/Resolved]
  - Intentional overdose [Recovered/Resolved]
  - Wrong drug administered [Recovered/Resolved]
